FAERS Safety Report 16832267 (Version 1)
Quarter: 2019Q3

REPORT INFORMATION
  Report Type: Spontaneous
  Country: US (occurrence: US)
  Receive Date: 20190730
  Receipt Date: 20190730
  Transmission Date: 20191005
  Serious: Yes (Hospitalization)
  Sender: FDA-Public Use
  Company Number: None

PATIENT
  Age: 57 Year
  Sex: Female
  Weight: 74 kg

DRUGS (2)
  1. VELCADE [Suspect]
     Active Substance: BORTEZOMIB
     Indication: PLASMA CELL MYELOMA
     Dosage: ?          OTHER DOSE:1.3 MG;OTHER FREQUENCY:DAYS 1,8,15,22;?
     Route: 042
     Dates: start: 20190510, end: 20190711
  2. SELINEXOR [Suspect]
     Active Substance: SELINEXOR
     Indication: PLASMA CELL MYELOMA
     Dosage: 60MG DAYS1,8,15,22,29 PO
     Route: 048
     Dates: start: 20190510, end: 20190718

REACTIONS (4)
  - Neuropathy peripheral [None]
  - Neuralgic amyotrophy [None]
  - Pain in extremity [None]
  - Disease progression [None]

NARRATIVE: CASE EVENT DATE: 20190729
